FAERS Safety Report 9325605 (Version 6)
Quarter: 2015Q4

REPORT INFORMATION
  Report Type: Report from Study
  Country: DE (occurrence: DE)
  Receive Date: 20130604
  Receipt Date: 20151202
  Transmission Date: 20160305
  Serious: Yes (Death, Hospitalization, Other)
  Sender: FDA-Public Use
  Company Number: DE-ROCHE-1231700

PATIENT
  Age: 67 Year
  Sex: Female
  Weight: 95 kg

DRUGS (32)
  1. 5-FU [Suspect]
     Active Substance: FLUOROURACIL
     Route: 041
     Dates: start: 20130605, end: 20130607
  2. FOLINIC ACID [Suspect]
     Active Substance: LEUCOVORIN
     Route: 042
     Dates: start: 20131106
  3. BEVACIZUMAB [Suspect]
     Active Substance: BEVACIZUMAB
     Route: 042
     Dates: start: 20130715, end: 20130715
  4. 5-FU [Suspect]
     Active Substance: FLUOROURACIL
     Route: 041
     Dates: start: 20131106, end: 20131108
  5. FOLINIC ACID [Suspect]
     Active Substance: LEUCOVORIN
     Indication: COLORECTAL CANCER
     Dosage: SUBSEQUENT DOSES ON 25/FEB/2013 AND 11/MAR/2013
     Route: 042
     Dates: start: 20130211
  6. NOVAMINSULFON [Concomitant]
     Active Substance: METAMIZOLE
     Indication: PAIN
     Route: 048
  7. METOPROLOL SUCCINATE. [Concomitant]
     Active Substance: METOPROLOL SUCCINATE
     Indication: CARDIAC FAILURE
  8. 5-FU [Suspect]
     Active Substance: FLUOROURACIL
     Route: 041
     Dates: start: 20130225, end: 20130227
  9. 5-FU [Suspect]
     Active Substance: FLUOROURACIL
     Route: 041
     Dates: start: 20130311, end: 20130313
  10. 5-FU [Suspect]
     Active Substance: FLUOROURACIL
     Route: 041
     Dates: start: 20130408, end: 20130410
  11. 5-FU [Suspect]
     Active Substance: FLUOROURACIL
     Route: 041
     Dates: start: 20130701, end: 20130703
  12. 5-FU [Suspect]
     Active Substance: FLUOROURACIL
     Route: 041
     Dates: start: 20130617, end: 20130619
  13. 5-FU [Suspect]
     Active Substance: FLUOROURACIL
     Dosage: SUBSEQUENT DOSES ON 23/MAR/2014, 08/APR/2013, 22/APR/2013, 06/MAY/2013, 21/MAY/2013, 05/JUN/2013, 17
     Route: 040
  14. FOLINIC ACID [Suspect]
     Active Substance: LEUCOVORIN
     Dosage: SUBSEQUENT DOSES ON 08/APR/2013, 22/APR/2013. 06/MAY/2013, 21/MAY/2013, 05/JUN/2013, 17/JUN/2013, 01
     Route: 042
     Dates: start: 20130325
  15. METOCLOPRAMID [Concomitant]
     Active Substance: METOCLOPRAMIDE
  16. IRINOTECAN [Suspect]
     Active Substance: IRINOTECAN
     Indication: COLORECTAL CANCER
     Dosage: SUBSEQUENT DOSES ON 25/FEB/2013 AND 11/MAR/2013
     Route: 042
     Dates: start: 20130211
  17. 5-FU [Suspect]
     Active Substance: FLUOROURACIL
     Route: 041
     Dates: start: 20130325, end: 20130327
  18. 5-FU [Suspect]
     Active Substance: FLUOROURACIL
     Route: 040
     Dates: start: 20131106
  19. OPIPRAMOL [Concomitant]
     Active Substance: OPIPRAMOL
     Indication: DEPRESSION
     Route: 048
  20. FUROSEMID [Concomitant]
     Active Substance: FUROSEMIDE
  21. 5-FU [Suspect]
     Active Substance: FLUOROURACIL
     Route: 041
     Dates: start: 20130506, end: 20130508
  22. 5-FU [Suspect]
     Active Substance: FLUOROURACIL
     Dosage: SUBSEQUENT DOSES ON 25/FEB/2013 AND 11/MAR/2013
     Route: 040
     Dates: start: 20130211
  23. BEVACIZUMAB [Suspect]
     Active Substance: BEVACIZUMAB
     Indication: COLORECTAL CANCER METASTATIC
     Route: 042
     Dates: start: 20130211, end: 20130211
  24. IRINOTECAN [Suspect]
     Active Substance: IRINOTECAN
     Dosage: SUBSEQUENT DOSES ON 22/APR/2013, 06/MAY/2013, 21/MAY/2013, 05/JUN/2013, 17/JUN/2013, 01/JUL/2013 AND
     Route: 042
     Dates: start: 20130408
  25. 5-FU [Suspect]
     Active Substance: FLUOROURACIL
     Indication: COLORECTAL CANCER
     Route: 041
     Dates: start: 20130211, end: 20130213
  26. 5-FU [Suspect]
     Active Substance: FLUOROURACIL
     Route: 041
     Dates: start: 20130422, end: 20130424
  27. 5-FU [Suspect]
     Active Substance: FLUOROURACIL
     Route: 041
     Dates: start: 20130521
  28. 5-FU [Suspect]
     Active Substance: FLUOROURACIL
     Route: 041
     Dates: start: 20130715, end: 20130717
  29. PANTOZOL [Concomitant]
     Active Substance: PANTOPRAZOLE SODIUM
     Indication: PROPHYLAXIS
     Route: 048
  30. FLECAINIDE [Concomitant]
     Active Substance: FLECAINIDE
     Indication: ARRHYTHMIA
     Route: 048
  31. MARCUMAR [Concomitant]
     Active Substance: PHENPROCOUMON
     Indication: ATRIAL FIBRILLATION
     Dosage: AS REQUIRED
     Route: 048
  32. IRINOTECAN [Suspect]
     Active Substance: IRINOTECAN
     Dosage: SUBSEQUENT DOSE ON 15/JUL/2013
     Route: 042
     Dates: start: 20130325

REACTIONS (6)
  - General physical health deterioration [Recovered/Resolved]
  - Abdominal pain upper [Recovering/Resolving]
  - Laboratory test abnormal [Not Recovered/Not Resolved]
  - Malignant neoplasm progression [Not Recovered/Not Resolved]
  - Pneumonia [Recovered/Resolved]
  - General physical health deterioration [Fatal]

NARRATIVE: CASE EVENT DATE: 20130507
